FAERS Safety Report 15041755 (Version 1)
Quarter: 2018Q2

REPORT INFORMATION
  Report Type: Spontaneous
  Country: JP (occurrence: JP)
  Receive Date: 20180621
  Receipt Date: 20180621
  Transmission Date: 20180711
  Serious: Yes (Other)
  Sender: FDA-Public Use
  Company Number: JP-ALKEM LABORATORIES LIMITED-JP-ALKEM-2018-04174

PATIENT
  Age: 50 Year
  Sex: Male

DRUGS (13)
  1. TACROLIMUS. [Suspect]
     Active Substance: TACROLIMUS
     Dosage: 1 MG, QD
     Route: 065
  2. FLUCONAZOLE. [Suspect]
     Active Substance: FLUCONAZOLE
     Indication: CANDIDA INFECTION
     Dosage: 400 MG, QD
     Route: 042
  3. FLUCONAZOLE. [Suspect]
     Active Substance: FLUCONAZOLE
     Indication: SPONDYLITIS
     Dosage: UNK
     Route: 048
  4. PREDNISOLONE. [Suspect]
     Active Substance: PREDNISOLONE
     Indication: IMMUNOSUPPRESSANT DRUG THERAPY
     Dosage: UNK
     Route: 065
  5. TACROLIMUS. [Suspect]
     Active Substance: TACROLIMUS
     Indication: IMMUNOSUPPRESSANT DRUG THERAPY
     Dosage: UNK
     Route: 065
  6. EVEROLIMUS. [Suspect]
     Active Substance: EVEROLIMUS
     Indication: IMMUNOSUPPRESSANT DRUG THERAPY
     Dosage: UNK
     Route: 065
  7. MYCOPHENOLATE MOFETIL. [Suspect]
     Active Substance: MYCOPHENOLATE MOFETIL
     Indication: IMMUNOSUPPRESSANT DRUG THERAPY
     Dosage: UNK
     Route: 065
  8. TACROLIMUS. [Suspect]
     Active Substance: TACROLIMUS
     Dosage: 3 MG, QD (FOLLOWING FLUCONAZOLE WITHDRAWAL)
     Route: 065
  9. TACROLIMUS. [Suspect]
     Active Substance: TACROLIMUS
     Dosage: 3.4 MG, QD
     Route: 065
  10. FLUCONAZOLE. [Suspect]
     Active Substance: FLUCONAZOLE
     Indication: INFECTION
     Dosage: 300 MG, QD (DOSE DECREASED AND THE WITHDRAWN AFTER INFECTION SUBSIDED)
     Route: 065
  11. EVEROLIMUS. [Suspect]
     Active Substance: EVEROLIMUS
     Dosage: 0.5 MG, QD
     Route: 065
  12. EVEROLIMUS. [Suspect]
     Active Substance: EVEROLIMUS
     Dosage: 1.75 MG, QD
     Route: 065
  13. TACROLIMUS. [Suspect]
     Active Substance: TACROLIMUS
     Dosage: 1.4 MG, QD (TACROLIMUS DOSAGE WAS DECREASED BY 60% TO MAINTAIN THE TARGET BLOOD CONCENTRATION OF 9)
     Route: 065

REACTIONS (6)
  - Spondylitis [Recovered/Resolved]
  - Renal impairment [Unknown]
  - Disease progression [Unknown]
  - Candida infection [Recovered/Resolved]
  - Drug interaction [Unknown]
  - Coronary artery disease [Unknown]
